FAERS Safety Report 24808630 (Version 1)
Quarter: 2025Q1

REPORT INFORMATION
  Report Type: Other
  Country: US (occurrence: US)
  Receive Date: 20250106
  Receipt Date: 20250106
  Transmission Date: 20250408
  Serious: Yes (Death, Hospitalization, Other)
  Sender: ANI
  Company Number: US-ANIPHARMA-015315

PATIENT
  Age: 55 Year
  Sex: Female

DRUGS (1)
  1. ZONISAMIDE [Suspect]
     Active Substance: ZONISAMIDE
     Indication: Weight decreased

REACTIONS (4)
  - Drug reaction with eosinophilia and systemic symptoms [Fatal]
  - Drug-induced liver injury [Fatal]
  - Vanishing bile duct syndrome [Recovering/Resolving]
  - Off label use [Unknown]
